FAERS Safety Report 8888261 (Version 3)
Quarter: 2013Q1

REPORT INFORMATION
  Report Type: Spontaneous
  Country: US (occurrence: US)
  Receive Date: 20121106
  Receipt Date: 20130204
  Transmission Date: 20140127
  Serious: Yes (Death, Hospitalization, Other)
  Sender: FDA-Public Use
  Company Number: US-PFIZER INC-2012274280

PATIENT
  Age: 74 Year
  Sex: Male

DRUGS (3)
  1. WARFARIN [Concomitant]
     Dosage: UNK
     Dates: end: 20120914
  2. DIOVAN [Concomitant]
     Dosage: UNK
  3. REVATIO [Suspect]
     Indication: PULMONARY HYPERTENSION
     Dosage: 20 MG, 3X/DAY
     Route: 048
     Dates: start: 201105

REACTIONS (3)
  - Subdural haematoma [Fatal]
  - Eye disorder [Unknown]
  - International normalised ratio abnormal [Unknown]
